FAERS Safety Report 15815463 (Version 3)
Quarter: 2019Q1

REPORT INFORMATION
  Report Type: Spontaneous
  Country: NL (occurrence: NL)
  Receive Date: 20190112
  Receipt Date: 20190112
  Transmission Date: 20190417
  Serious: Yes (Hospitalization, Other)
  Sender: FDA-Public Use
  Company Number: PHHY2019NL000722

PATIENT
  Age: 31 Year
  Sex: Female

DRUGS (3)
  1. AMOXICILLIN + CLAVULANATE POTASSIUM [Suspect]
     Active Substance: AMOXICILLIN\CLAVULANATE POTASSIUM
     Indication: CYSTITIS
     Route: 065
  2. PARACETAMOL [Suspect]
     Active Substance: ACETAMINOPHEN
     Indication: PYREXIA
     Route: 065
  3. PREDNISOLONE. [Suspect]
     Active Substance: PREDNISOLONE
     Indication: DRUG REACTION WITH EOSINOPHILIA AND SYSTEMIC SYMPTOMS
     Dosage: 1 MG/KG, UNK
     Route: 048

REACTIONS (18)
  - Skin plaque [Recovering/Resolving]
  - Tachycardia [Unknown]
  - Venous pressure jugular increased [Unknown]
  - Inflammation [Recovering/Resolving]
  - Hepatic enzyme increased [Recovering/Resolving]
  - Pyrexia [Recovering/Resolving]
  - Leukocytosis [Recovering/Resolving]
  - Eosinophilia [Recovering/Resolving]
  - Rales [Unknown]
  - Chest pain [Unknown]
  - Dyspnoea exertional [Unknown]
  - Cardiac tamponade [Recovering/Resolving]
  - Myocarditis [Recovering/Resolving]
  - Arthralgia [Unknown]
  - Drug reaction with eosinophilia and systemic symptoms [Recovering/Resolving]
  - Interstitial lung disease [Recovering/Resolving]
  - Myocardial necrosis marker increased [Recovering/Resolving]
  - Maternal exposure during pregnancy [Unknown]
